FAERS Safety Report 21517355 (Version 4)
Quarter: 2023Q1

REPORT INFORMATION
  Report Type: Other
  Country: DE (occurrence: None)
  Receive Date: 20221028
  Receipt Date: 20230224
  Transmission Date: 20230417
  Serious: No
  Sender: FDA-Public Use
  Company Number: DE-ROCHE-2886686

PATIENT
  Age: 46 Year
  Sex: Female

DRUGS (12)
  1. OCREVUS [Suspect]
     Active Substance: OCRELIZUMAB
     Indication: Relapsing-remitting multiple sclerosis
     Dosage: FIRST INFUSION
     Route: 042
     Dates: start: 20210723
  2. OCREVUS [Suspect]
     Active Substance: OCRELIZUMAB
     Dosage: SECOND INITIAL DOSE
     Route: 042
     Dates: start: 20210806
  3. OCREVUS [Suspect]
     Active Substance: OCRELIZUMAB
     Route: 042
  4. OCREVUS [Suspect]
     Active Substance: OCRELIZUMAB
     Route: 042
  5. JARDIANCE [Suspect]
     Active Substance: EMPAGLIFLOZIN
     Indication: Product used for unknown indication
     Route: 065
  6. RAMIPRIL [Concomitant]
     Active Substance: RAMIPRIL
  7. DIMETHINDENE [Concomitant]
     Active Substance: DIMETHINDENE
  8. AMLODIPINE [Concomitant]
     Active Substance: AMLODIPINE BESYLATE
  9. ESCITALOPRAM [Concomitant]
     Active Substance: ESCITALOPRAM OXALATE
  10. LAXANS [Concomitant]
     Dosage: 7.5 MG/ML AS NEEDED
  11. NABIXIMOLS [Concomitant]
     Active Substance: NABIXIMOLS
     Dosage: SPRAY 2 PUFFS IN THE MORNING AND 4 PUFFS IN THE EVENING?SATIVEX (0-0-1 PUFF)
  12. BACLOFEN [Concomitant]
     Active Substance: BACLOFEN
     Dosage: 1/2-0-1?BACLOFEN 5 MG (1-0-2)

REACTIONS (14)
  - Dyspnoea [Recovered/Resolved]
  - Fatigue [Recovered/Resolved]
  - Pain in extremity [Recovering/Resolving]
  - Hypoaesthesia [Recovered/Resolved]
  - Muscle spasticity [Recovered/Resolved]
  - Cystitis noninfective [Recovered/Resolved]
  - Hyperhidrosis [Recovered/Resolved]
  - Oropharyngeal pain [Recovered/Resolved]
  - Malaise [Recovered/Resolved]
  - COVID-19 [Recovered/Resolved]
  - Productive cough [Recovered/Resolved]
  - Blood glucose increased [Recovered/Resolved]
  - Polyuria [Recovered/Resolved]
  - Fall [Unknown]

NARRATIVE: CASE EVENT DATE: 20210723
